FAERS Safety Report 18411765 (Version 2)
Quarter: 2021Q3

REPORT INFORMATION
  Report Type: Report from Study
  Country: RU (occurrence: RU)
  Receive Date: 20201021
  Receipt Date: 20210719
  Transmission Date: 20211014
  Serious: Yes (Death)
  Sender: FDA-Public Use
  Company Number: NVSC2020RU282790

PATIENT
  Age: 61 Year
  Sex: Female

DRUGS (1)
  1. RIBOCICLIB. [Suspect]
     Active Substance: RIBOCICLIB
     Indication: BREAST CANCER
     Dosage: 200 MG, TID TABLET (ALTOGETHER 600 MG A DAY)
     Route: 048
     Dates: start: 201904, end: 202007

REACTIONS (2)
  - Death [Fatal]
  - Coronavirus test positive [Unknown]

NARRATIVE: CASE EVENT DATE: 20200702
